FAERS Safety Report 4560633-9 (Version None)
Quarter: 2005Q1

REPORT INFORMATION
  Report Type: 
  Country: None (occurrence: None)
  Receive Date: 20050125
  Receipt Date: 20040303
  Transmission Date: 20050727
  Serious: Yes (Other)
  Sender: FDA-Public Use
  Company Number: ES-MERCK-0403ESP00009

PATIENT
  Age: 65 Year
  Sex: Male

DRUGS (2)
  1. COSOPT [Suspect]
     Indication: GLAUCOMA
     Route: 047
     Dates: start: 20031201, end: 20040108
  2. KETOROLAC TROMETHAMINE [Concomitant]
     Route: 047
     Dates: end: 20040108

REACTIONS (3)
  - BLEPHARITIS [None]
  - CONJUNCTIVITIS [None]
  - FACE OEDEMA [None]
